FAERS Safety Report 5956955-7 (Version None)
Quarter: 2008Q4

REPORT INFORMATION
  Report Type: 
  Country: None (occurrence: None)
  Receive Date: 20081118
  Receipt Date: 20081113
  Transmission Date: 20090506
  Serious: Yes (Disabling)
  Sender: FDA-Public Use
  Company Number: JP-ASTRAZENECA-2008AP05070

PATIENT
  Age: 58 Year
  Sex: Female

DRUGS (3)
  1. CARBOCAIN [Suspect]
     Indication: EPIDURAL ANAESTHESIA
     Dosage: 1% 7 CC
     Route: 008
     Dates: start: 20080626, end: 20080626
  2. CELESTONE [Concomitant]
     Dosage: 1 CC
     Route: 008
     Dates: start: 20080626, end: 20080626
  3. ISOTONIC SODIUM CHLORIDE SOLUTION [Concomitant]
     Dosage: 7 CC
     Route: 008
     Dates: start: 20080626, end: 20080626

REACTIONS (1)
  - MOVEMENT DISORDER [None]
